FAERS Safety Report 8950661 (Version 2)
Quarter: 2013Q1

REPORT INFORMATION
  Report Type: Spontaneous
  Country: FR (occurrence: FR)
  Receive Date: 20121207
  Receipt Date: 20130305
  Transmission Date: 20140127
  Serious: Yes (Hospitalization, Other)
  Sender: FDA-Public Use
  Company Number: FR-009507513-1211FRA012842

PATIENT
  Age: 70 Year
  Sex: Female

DRUGS (8)
  1. VICTRELIS [Suspect]
     Indication: HEPATITIS C
     Dosage: 2400 MG, QD
     Route: 048
     Dates: start: 20120704, end: 20120905
  2. COPEGUS [Concomitant]
     Indication: PRODUCT USED FOR UNKNOWN INDICATION
  3. PEGASYS [Concomitant]
     Indication: PRODUCT USED FOR UNKNOWN INDICATION
  4. LANTUS [Concomitant]
     Dosage: UNK
  5. NOVORAPID [Concomitant]
     Dosage: UNK
  6. COKENZEN [Concomitant]
     Dosage: UNK
  7. AMLOR [Concomitant]
     Dosage: UNK
  8. LYRICA [Concomitant]
     Dosage: UNK

REACTIONS (1)
  - Pancytopenia [Recovered/Resolved]
